FAERS Safety Report 6201218-8 (Version None)
Quarter: 2009Q2

REPORT INFORMATION
  Report Type: 
  Country: None (occurrence: None)
  Receive Date: 20090526
  Receipt Date: 20090518
  Transmission Date: 20091009
  Serious: Yes (Other)
  Sender: FDA-Public Use
  Company Number: DE-JNJFOC-20090504640

PATIENT
  Age: 30 Year
  Sex: Female

DRUGS (3)
  1. TOPAMAX [Suspect]
     Route: 048
  2. TOPAMAX [Suspect]
     Route: 048
  3. TOPAMAX [Suspect]
     Indication: EPILEPSY
     Route: 048

REACTIONS (3)
  - ANOREXIA NERVOSA [None]
  - ECZEMA [None]
  - GRAND MAL CONVULSION [None]
